APPROVED DRUG PRODUCT: DONEPEZIL HYDROCHLORIDE
Active Ingredient: DONEPEZIL HYDROCHLORIDE
Strength: 23MG
Dosage Form/Route: TABLET;ORAL
Application: A203114 | Product #001
Applicant: OSMOTICA PHARMACEUTICAL US LLC
Approved: Jan 26, 2016 | RLD: No | RS: No | Type: DISCN